FAERS Safety Report 24083497 (Version 1)
Quarter: 2024Q3

REPORT INFORMATION
  Report Type: Spontaneous
  Country: US (occurrence: US)
  Receive Date: 20240712
  Receipt Date: 20240712
  Transmission Date: 20241017
  Serious: Yes (Disabling, Other)
  Sender: HIKMA
  Company Number: US-MLMSERVICE-20240621-PI109499-00129-2

PATIENT
  Age: 44 Year
  Sex: Male

DRUGS (1)
  1. DOXYCYCLINE [Suspect]
     Active Substance: DOXYCYCLINE\DOXYCYCLINE HYCLATE
     Indication: Q fever
     Dosage: 100 MILLIGRAM, Q12H
     Route: 065

REACTIONS (2)
  - Tinnitus [Unknown]
  - Deafness [Unknown]
